FAERS Safety Report 6045090-8 (Version None)
Quarter: 2009Q1

REPORT INFORMATION
  Report Type: 
  Country: None (occurrence: None)
  Receive Date: 20090121
  Receipt Date: 20090116
  Transmission Date: 20090719
  Serious: Yes (Hospitalization)
  Sender: FDA-Public Use
  Company Number: FR-BIOGENIDEC-2008BI025206

PATIENT
  Age: 46 Year
  Sex: Female

DRUGS (4)
  1. TYSABRI [Suspect]
     Indication: RELAPSING-REMITTING MULTIPLE SCLEROSIS
     Route: 042
     Dates: start: 20071218, end: 20080826
  2. MYSOLINE [Concomitant]
     Indication: TREMOR
     Route: 048
     Dates: start: 20080501, end: 20080924
  3. LAMICTAL [Concomitant]
     Indication: EPILEPSY
     Route: 048
  4. PROPRANOLOL [Concomitant]
     Indication: HYPERTENSION

REACTIONS (1)
  - ANAEMIA HAEMOLYTIC AUTOIMMUNE [None]
